FAERS Safety Report 21026004 (Version 3)
Quarter: 2025Q1

REPORT INFORMATION
  Report Type: Spontaneous
  Country: US (occurrence: US)
  Receive Date: 20220630
  Receipt Date: 20250225
  Transmission Date: 20250409
  Serious: No
  Sender: LEO PHARM
  Company Number: US-LEO Pharma-343402

PATIENT
  Sex: Female

DRUGS (1)
  1. ADBRY [Suspect]
     Active Substance: TRALOKINUMAB-LDRM
     Indication: Dermatitis
     Dosage: 600 MG FOR THE INITIAL DOSE THEN EVERY TWO WEEKS
     Route: 058
     Dates: start: 20220502

REACTIONS (2)
  - Dry skin [Recovering/Resolving]
  - Dermatitis atopic [Recovering/Resolving]
